FAERS Safety Report 15267860 (Version 1)
Quarter: 2018Q3

REPORT INFORMATION
  Report Type: Spontaneous
  Country: US (occurrence: US)
  Receive Date: 20180725
  Receipt Date: 20180725
  Transmission Date: 20181010
  Serious: No
  Sender: FDA-Public Use
  Company Number: None

PATIENT
  Age: 63 Year
  Sex: Female
  Weight: 97.65 kg

DRUGS (1)
  1. DULOXETINE. [Suspect]
     Active Substance: DULOXETINE
     Indication: FIBROMYALGIA
     Dosage: ?          QUANTITY:180 CAPSULE(S);?
     Route: 048
     Dates: start: 20170430, end: 20170725

REACTIONS (8)
  - Anxiety [None]
  - Product substitution issue [None]
  - Arthralgia [None]
  - Inability to afford medication [None]
  - Fatigue [None]
  - Insurance issue [None]
  - Mobility decreased [None]
  - Depression [None]

NARRATIVE: CASE EVENT DATE: 20170601
